FAERS Safety Report 8240890-8 (Version None)
Quarter: 2012Q1

REPORT INFORMATION
  Report Type: 
  Country: None (occurrence: None)
  Receive Date: 20120328
  Receipt Date: 20120320
  Transmission Date: 20120608
  Serious: Yes (Death, Other)
  Sender: FDA-Public Use
  Company Number: US-ELI_LILLY_AND_COMPANY-US201203006771

PATIENT
  Age: 80 Year
  Sex: Female

DRUGS (5)
  1. TYVASO [Concomitant]
  2. ADCIRCA [Suspect]
     Indication: PULMONARY HYPERTENSION
  3. IMDUR [Concomitant]
  4. AMBRISENTAN [Concomitant]
     Indication: PULMONARY HYPERTENSION
     Dosage: 10 MG, UNKNOWN
     Dates: start: 20110401
  5. NITROGLYCERIN [Concomitant]

REACTIONS (5)
  - CIRCULATORY COLLAPSE [None]
  - MYOCARDIAL INFARCTION [None]
  - DRUG INTERACTION [None]
  - DEATH [None]
  - LABELLED DRUG-DRUG INTERACTION MEDICATION ERROR [None]
